FAERS Safety Report 8645621 (Version 2)
Quarter: 2012Q4

REPORT INFORMATION
  Report Type: 
  Country: US (occurrence: US)
  Receive Date: 20120702
  Receipt Date: 20120911
  Transmission Date: 20130627
  Serious: Yes (Hospitalization, Other)
  Sender: FDA-Public Use
  Company Number: US-PFIZER INC-2012155894

PATIENT
  Age: 32 Year
  Sex: Female

DRUGS (5)
  1. CHANTIX [Suspect]
     Indication: SMOKING CESSATION THERAPY
     Dosage: 0.5mg/1mg
     Dates: start: 200909, end: 200911
  2. ALBUTEROL [Concomitant]
     Indication: ASTHMA
     Dosage: UNK
     Dates: start: 2005, end: 2012
  3. SINGULAIR [Concomitant]
     Indication: ASTHMA
     Dosage: UNK
     Dates: start: 2005, end: 2012
  4. RITALIN [Concomitant]
     Indication: NARCOLEPSY
     Dosage: UNK
     Dates: start: 2007, end: 2010
  5. PROVIGIL [Concomitant]
     Indication: NARCOLEPSY
     Dosage: UNK
     Dates: start: 2007, end: 2010

REACTIONS (6)
  - Suicide attempt [Recovered/Resolved]
  - Depression [Recovered/Resolved]
  - Anxiety [Recovered/Resolved]
  - Psychotic disorder [Recovered/Resolved]
  - Abnormal behaviour [Recovered/Resolved]
  - Mood swings [Recovered/Resolved]
